FAERS Safety Report 5207074-9 (Version None)
Quarter: 2007Q1

REPORT INFORMATION
  Report Type: 
  Country: None (occurrence: None)
  Receive Date: 20070112
  Receipt Date: 20070109
  Transmission Date: 20070707
  Serious: Yes (Life-Threatening)
  Sender: FDA-Public Use
  Company Number: US-JNJFOC-20061103970

PATIENT
  Sex: Female

DRUGS (2)
  1. ARESTIN [Suspect]
     Indication: PERIODONTITIS
  2. CIPROFLOXACIN [Interacting]
     Indication: DRUG USE FOR UNKNOWN INDICATION

REACTIONS (2)
  - APPARENT LIFE THREATENING EVENT [None]
  - DRUG INTERACTION [None]
